FAERS Safety Report 18814505 (Version 1)
Quarter: 2021Q1

REPORT INFORMATION
  Report Type: Spontaneous
  Country: CN (occurrence: CN)
  Receive Date: 20210201
  Receipt Date: 20210201
  Transmission Date: 20210419
  Serious: Yes (Other)
  Sender: FDA-Public Use
  Company Number: CN-JNJFOC-20210139275

PATIENT
  Age: 64 Year
  Sex: Female
  Weight: 67 kg

DRUGS (4)
  1. BOSENTAN. [Concomitant]
     Active Substance: BOSENTAN
  2. XARELTO [Suspect]
     Active Substance: RIVAROXABAN
     Indication: ATRIAL FIBRILLATION
     Dosage: 20 MG, QD
     Route: 048
     Dates: start: 20200904, end: 20210105
  3. XARELTO [Suspect]
     Active Substance: RIVAROXABAN
     Indication: ANTICOAGULANT THERAPY
     Dosage: 15 MG, QD
     Route: 048
     Dates: start: 20210108
  4. TORASEMIDE [Concomitant]
     Active Substance: TORSEMIDE

REACTIONS (3)
  - Type 2 diabetes mellitus [Unknown]
  - Prothrombin time prolonged [Recovering/Resolving]
  - International normalised ratio increased [Recovering/Resolving]

NARRATIVE: CASE EVENT DATE: 20210105
